FAERS Safety Report 16813928 (Version 1)
Quarter: 2019Q3

REPORT INFORMATION
  Report Type: Spontaneous
  Country: DE (occurrence: DE)
  Receive Date: 20190917
  Receipt Date: 20190917
  Transmission Date: 20191005
  Serious: Yes (Life-Threatening, Hospitalization, Other)
  Sender: FDA-Public Use
  Company Number: DE-AUROBINDO-AUR-APL-2019-045333

PATIENT
  Age: 18 Month
  Sex: Female

DRUGS (2)
  1. PARACETAMOL [Suspect]
     Active Substance: ACETAMINOPHEN
     Indication: FEBRILE INFECTION
     Dosage: UNK
     Route: 065
  2. PARACETAMOL [Suspect]
     Active Substance: ACETAMINOPHEN
     Indication: FEBRILE INFECTION
     Dosage: FLUID FORM
     Route: 065

REACTIONS (6)
  - Accidental overdose [Unknown]
  - Haemorrhage [Unknown]
  - Hepatic necrosis [Unknown]
  - Hepatic steatosis [Unknown]
  - Acute hepatic failure [Unknown]
  - Medication error [Unknown]
